FAERS Safety Report 17366288 (Version 2)
Quarter: 2020Q1

REPORT INFORMATION
  Report Type: Spontaneous
  Country: US (occurrence: US)
  Receive Date: 20200204
  Receipt Date: 20200306
  Transmission Date: 20200409
  Serious: Yes (Other)
  Sender: FDA-Public Use
  Company Number: US-SA-2020SA021093

PATIENT
  Age: 66 Year
  Sex: Male

DRUGS (2)
  1. SYNVISC-ONE [Suspect]
     Active Substance: HYLAN G-F 20
     Indication: PRODUCT USED FOR UNKNOWN INDICATION
     Dosage: 6 ML, 1X
     Route: 014
     Dates: start: 20191209, end: 20191209
  2. TRIAMCINOLONE ACETONIDE. [Suspect]
     Active Substance: TRIAMCINOLONE ACETONIDE
     Indication: JOINT EFFUSION

REACTIONS (6)
  - Joint swelling [Unknown]
  - Pain [Unknown]
  - Hypersensitivity [Unknown]
  - Joint effusion [Unknown]
  - Synovial fluid white blood cells positive [Unknown]
  - Pyrexia [Unknown]

NARRATIVE: CASE EVENT DATE: 20200114
